FAERS Safety Report 5938323-7 (Version None)
Quarter: 2008Q4

REPORT INFORMATION
  Report Type: 
  Country: None (occurrence: None)
  Receive Date: 20081103
  Receipt Date: 20081025
  Transmission Date: 20090506
  Serious: Yes (Other)
  Sender: FDA-Public Use
  Company Number: GR-JNJFOC-20081006956

PATIENT
  Sex: Female

DRUGS (1)
  1. ALOPERIDIN [Suspect]
     Indication: MENTAL DISORDER

REACTIONS (1)
  - HYPOTHERMIA [None]
